FAERS Safety Report 7097927-1 (Version None)
Quarter: 2010Q4

REPORT INFORMATION
  Report Type: 
  Country: None (occurrence: None)
  Receive Date: 20101103
  Receipt Date: 20101026
  Transmission Date: 20110411
  Serious: Yes (Hospitalization)
  Sender: FDA-Public Use
  Company Number: 021173

PATIENT
  Sex: Female

DRUGS (5)
  1. KEPPRA [Suspect]
     Indication: PARTIAL SEIZURES
     Dosage: (900 MG ORAL)
     Route: 048
     Dates: start: 20100315, end: 20100330
  2. PARIET [Concomitant]
  3. ASPIRIN [Concomitant]
  4. MICARDIS HCT [Concomitant]
  5. EUTIROX /00068001/ [Concomitant]

REACTIONS (1)
  - HYPONATRAEMIA [None]
